FAERS Safety Report 18143907 (Version 1)
Quarter: 2020Q3

REPORT INFORMATION
  Report Type: Spontaneous
  Country: US (occurrence: US)
  Receive Date: 20200811
  Receipt Date: 20200811
  Transmission Date: 20201103
  Serious: Yes (Other)
  Sender: FDA-Public Use
  Company Number: None

PATIENT
  Age: 66 Year
  Sex: Female

DRUGS (1)
  1. ASSURED HAND SANITIZER 8OZ ALOE [Suspect]
     Active Substance: ALCOHOL
     Indication: COVID-19 PROPHYLAXIS
     Dates: start: 202004, end: 202007

REACTIONS (6)
  - Product contamination chemical [None]
  - Headache [None]
  - Recalled product administered [None]
  - Hypoaesthesia [None]
  - Paraesthesia [None]
  - Product use complaint [None]

NARRATIVE: CASE EVENT DATE: 202006
